FAERS Safety Report 14295469 (Version 1)
Quarter: 2017Q4

REPORT INFORMATION
  Report Type: Spontaneous
  Country: US (occurrence: US)
  Receive Date: 20171218
  Receipt Date: 20171218
  Transmission Date: 20180321
  Serious: No
  Sender: FDA-Public Use
  Company Number: US-LPDUSPRD-20161075

PATIENT

DRUGS (1)
  1. VENOFER [Suspect]
     Active Substance: IRON SUCROSE
     Dosage: UNKNOWN
     Route: 065

REACTIONS (2)
  - Dyspnoea [Unknown]
  - Back pain [Unknown]
